FAERS Safety Report 4715610-1 (Version None)
Quarter: 2005Q3

REPORT INFORMATION
  Report Type: 
  Country: None (occurrence: None)
  Receive Date: 20050714
  Receipt Date: 20050701
  Transmission Date: 20060218
  Serious: Yes (Other)
  Sender: FDA-Public Use
  Company Number: 2005-DE-02552GD

PATIENT

DRUGS (8)
  1. MORPHINE [Suspect]
     Indication: ANALGESIC EFFECT
     Dosage: 4 MG/HOUR IN THE EMERGENCY ROOM, 1 OR 2 MG FOR SURGERY; THE POSTOPERATIVE DOSE WAS NOT REPORTED (SEE
     Route: 008
  2. MORPHINE [Suspect]
     Indication: POSTOPERATIVE ANALGESIA
     Dosage: 4 MG/HOUR IN THE EMERGENCY ROOM, 1 OR 2 MG FOR SURGERY; THE POSTOPERATIVE DOSE WAS NOT REPORTED (SEE
     Route: 008
  3. ACETAMINOPHEN [Concomitant]
  4. BUPIVACAINE [Concomitant]
  5. PROPOFOL [Concomitant]
  6. ROFECOXIB [Concomitant]
  7. CEFUROXIME [Concomitant]
  8. ENOXAPARIN SODIUM [Concomitant]

REACTIONS (3)
  - DRUG INTOLERANCE [None]
  - RESPIRATORY FAILURE [None]
  - SEDATION [None]
